FAERS Safety Report 16806658 (Version 1)
Quarter: 2019Q3

REPORT INFORMATION
  Report Type: Spontaneous
  Country: US (occurrence: US)
  Receive Date: 20190913
  Receipt Date: 20190913
  Transmission Date: 20191005
  Serious: Yes (Other)
  Sender: FDA-Public Use
  Company Number: US-BAYER-2019-164997

PATIENT
  Age: 69 Year
  Sex: Female
  Weight: 45.35 kg

DRUGS (5)
  1. BETASERON [Suspect]
     Active Substance: INTERFERON BETA-1B
  2. AMLODIPINE [Concomitant]
     Active Substance: AMLODIPINE BESYLATE
     Indication: HYPERTENSION
     Dosage: 2.5 MG
     Dates: start: 2017
  3. LYRICA [Concomitant]
     Active Substance: PREGABALIN
     Indication: MULTIPLE SCLEROSIS
  4. PREGABALIN. [Suspect]
     Active Substance: PREGABALIN
     Indication: FIBROMYALGIA
     Dosage: 50 MG, TID
  5. VITAMINS NOS [Concomitant]
     Active Substance: VITAMINS
     Indication: PROPHYLAXIS
     Dosage: 1 DF, QD

REACTIONS (3)
  - Gastric cancer [None]
  - Anxiety [None]
  - Fibromyalgia [None]
